FAERS Safety Report 7364241-6 (Version None)
Quarter: 2011Q1

REPORT INFORMATION
  Report Type: 
  Country: None (occurrence: None)
  Receive Date: 20110321
  Receipt Date: 20110318
  Transmission Date: 20110831
  Serious: Yes (Disabling)
  Sender: FDA-Public Use
  Company Number: A0908615A

PATIENT
  Sex: Female

DRUGS (3)
  1. ADVAIR DISKUS 100/50 [Suspect]
     Indication: ASTHMA
     Route: 055
  2. UNKNOWN [Concomitant]
  3. VENTOLIN [Suspect]
     Indication: ASTHMA
     Route: 055
     Dates: start: 20100412

REACTIONS (8)
  - DYSPNOEA [None]
  - PRODUCT QUALITY ISSUE [None]
  - LUNG INFECTION [None]
  - INHALATION THERAPY [None]
  - DRUG ADMINISTRATION ERROR [None]
  - MALAISE [None]
  - DRUG INEFFECTIVE [None]
  - LUNG DISORDER [None]
